FAERS Safety Report 8791338 (Version 1)
Quarter: 2012Q4

REPORT INFORMATION
  Report Type: Spontaneous
  Country: US (occurrence: None)
  Receive Date: 20120911
  Receipt Date: 20120911
  Transmission Date: 20130627
  Serious: Yes (Hospitalization)
  Sender: FDA-Public Use
  Company Number: DSU-2012-07005

PATIENT
  Sex: Male

DRUGS (3)
  1. BENICAR HCT [Suspect]
     Indication: HYPERTENSION
     Dosage: Unknown, Per oral
     Route: 048
  2. TYLENOL (PARACETAMOL) (PARACETAMOL) [Concomitant]
  3. CELEBREX (CELECOXIB) (CELECOXIB) [Concomitant]

REACTIONS (2)
  - Blood creatinine increased [None]
  - Blood urea increased [None]
